FAERS Safety Report 7327826-9 (Version None)
Quarter: 2011Q1

REPORT INFORMATION
  Report Type: 
  Country: None (occurrence: None)
  Receive Date: 20110303
  Receipt Date: 20110228
  Transmission Date: 20110831
  Serious: Yes (Other)
  Sender: FDA-Public Use
  Company Number: US-PFIZER INC-2011043806

PATIENT
  Sex: Female

DRUGS (6)
  1. ZITHROMAX [Suspect]
     Indication: OROPHARYNGEAL PAIN
  2. VENTOLIN [Concomitant]
     Dosage: UNK
  3. ZITHROMAX [Suspect]
     Indication: COUGH
  4. ADVAIR DISKUS 100/50 [Concomitant]
     Dosage: UNK
  5. ZITHROMAX [Suspect]
     Indication: PNEUMONIA
     Dosage: UNK
     Route: 048
     Dates: start: 20110201, end: 20110201
  6. ZITHROMAX [Suspect]
     Indication: PYREXIA

REACTIONS (3)
  - AGEUSIA [None]
  - ANOSMIA [None]
  - DYSGEUSIA [None]
